FAERS Safety Report 4808344-6 (Version None)
Quarter: 2005Q4

REPORT INFORMATION
  Report Type: 
  Country: None (occurrence: None)
  Receive Date: 20051021
  Receipt Date: 20051011
  Transmission Date: 20060501
  Serious: Yes (Other)
  Sender: FDA-Public Use
  Company Number: HQWYE970112OCT05

PATIENT
  Age: 81 Year
  Sex: Female

DRUGS (3)
  1. CORDARONE [Suspect]
     Indication: ATRIAL FIBRILLATION
     Dosage: 200 MG 1X PER 1 DAY; ORAL
     Route: 048
     Dates: start: 20030501
  2. MIRTAZAPINE [Suspect]
     Indication: DEPRESSION
     Dosage: ORAL
     Route: 048
     Dates: start: 20050701, end: 20050713
  3. GLYCERYL TRINITRATE [Concomitant]

REACTIONS (3)
  - HAEMOLYSIS [None]
  - PANCYTOPENIA [None]
  - SEDATION [None]
